FAERS Safety Report 15579499 (Version 1)
Quarter: 2018Q4

REPORT INFORMATION
  Report Type: Spontaneous
  Country: BR (occurrence: BR)
  Receive Date: 20181102
  Receipt Date: 20181102
  Transmission Date: 20190205
  Serious: Yes (Other)
  Sender: FDA-Public Use
  Company Number: BR-PFIZER INC-2018441594

PATIENT
  Sex: Female

DRUGS (3)
  1. PRISTIQ EXTENDED-RELEASE [Suspect]
     Active Substance: DESVENLAFAXINE SUCCINATE
     Indication: DEPRESSION
     Dosage: 50 MG, DAILY
     Dates: start: 2015
  2. PRISTIQ EXTENDED-RELEASE [Suspect]
     Active Substance: DESVENLAFAXINE SUCCINATE
     Dosage: 100 MG, UNK
  3. LYRICA [Suspect]
     Active Substance: PREGABALIN
     Indication: DEPRESSION
     Dosage: 1 DF, DAILY AT BEDTIME

REACTIONS (14)
  - Stress [Unknown]
  - Fear of falling [Not Recovered/Not Resolved]
  - Product use in unapproved indication [Unknown]
  - Psychiatric symptom [Not Recovered/Not Resolved]
  - Nausea [Unknown]
  - Intentional product misuse [Unknown]
  - Dizziness [Not Recovered/Not Resolved]
  - Anxiety [Not Recovered/Not Resolved]
  - Panic disorder [Not Recovered/Not Resolved]
  - Restlessness [Unknown]
  - Diabetes mellitus [Not Recovered/Not Resolved]
  - Fear [Not Recovered/Not Resolved]
  - Fear of disease [Not Recovered/Not Resolved]
  - Tremor [Unknown]
